FAERS Safety Report 6842891-0 (Version None)
Quarter: 2010Q3

REPORT INFORMATION
  Report Type: 
  Country: None (occurrence: None)
  Receive Date: 20100714
  Receipt Date: 20070823
  Transmission Date: 20110219
  Serious: No
  Sender: FDA-Public Use
  Company Number: US-PFIZER INC-2007066889

PATIENT
  Sex: Male
  Weight: 72.6 kg

DRUGS (3)
  1. CHANTIX [Suspect]
     Indication: SMOKING CESSATION THERAPY
     Dates: start: 20070101
  2. LIPITOR [Concomitant]
  3. NICORETTE [Concomitant]
     Dosage: 1 PIECES/DAY
     Dates: start: 20040101

REACTIONS (1)
  - SLEEP DISORDER [None]
